FAERS Safety Report 12946422 (Version 3)
Quarter: 2017Q1

REPORT INFORMATION
  Report Type: Spontaneous
  Country: JP (occurrence: JP)
  Receive Date: 20161115
  Receipt Date: 20170210
  Transmission Date: 20170428
  Serious: Yes (Death, Other)
  Sender: FDA-Public Use
  Company Number: JP-UCBSA-2016042984

PATIENT
  Age: 80 Year
  Sex: Female

DRUGS (4)
  1. LANSOPRAZOLE. [Concomitant]
     Active Substance: LANSOPRAZOLE
     Indication: PRODUCT USED FOR UNKNOWN INDICATION
     Route: 048
  2. E KEPPRA [Suspect]
     Active Substance: LEVETIRACETAM
     Indication: SEIZURE
     Dosage: 2 G, DAILY
     Route: 048
     Dates: start: 20161102, end: 20161104
  3. E KEPPRA [Suspect]
     Active Substance: LEVETIRACETAM
     Indication: ENCEPHALOPATHY
  4. E KEPPRA [Suspect]
     Active Substance: LEVETIRACETAM
     Indication: OFF LABEL USE
     Dosage: 1 G DAILY
     Route: 048
     Dates: start: 20161104, end: 20161105

REACTIONS (3)
  - Respiratory failure [Fatal]
  - Respiratory depression [Not Recovered/Not Resolved]
  - Off label use [Unknown]

NARRATIVE: CASE EVENT DATE: 20161102
